FAERS Safety Report 14127396 (Version 1)
Quarter: 2017Q4

REPORT INFORMATION
  Report Type: Spontaneous
  Country: US (occurrence: US)
  Receive Date: 20171026
  Receipt Date: 20171026
  Transmission Date: 20180321
  Serious: No
  Sender: FDA-Public Use
  Company Number: US-TEVA-754804ACC

PATIENT
  Sex: Female
  Weight: 45 kg

DRUGS (1)
  1. CARBIDOPA AND LEVODOPA [Suspect]
     Active Substance: CARBIDOPA\LEVODOPA
     Indication: PARKINSON^S DISEASE
     Dosage: 25/100MG
     Route: 065

REACTIONS (4)
  - Drug ineffective [Unknown]
  - Expired product administered [Unknown]
  - Dyskinesia [Unknown]
  - Palpitations [Unknown]
